FAERS Safety Report 24919079 (Version 2)
Quarter: 2025Q1

REPORT INFORMATION
  Report Type: Spontaneous
  Country: US (occurrence: US)
  Receive Date: 20250204
  Receipt Date: 20250214
  Transmission Date: 20250408
  Serious: Yes (Other)
  Sender: TEVA
  Company Number: US-TEVA-VS-3292998

PATIENT
  Age: 53 Year
  Sex: Male

DRUGS (4)
  1. FLUOROURACIL [Suspect]
     Active Substance: FLUOROURACIL
     Indication: Squamous cell carcinoma
     Route: 065
     Dates: start: 202108
  2. PEMBROLIZUMAB [Suspect]
     Active Substance: PEMBROLIZUMAB
     Indication: Squamous cell carcinoma
     Route: 065
     Dates: start: 202111
  3. CETUXIMAB [Suspect]
     Active Substance: CETUXIMAB
     Indication: Squamous cell carcinoma
     Route: 065
     Dates: start: 202207
  4. MITOMYCIN [Suspect]
     Active Substance: MITOMYCIN
     Indication: Squamous cell carcinoma
     Route: 065
     Dates: start: 202108

REACTIONS (2)
  - Drug ineffective [Unknown]
  - Recall phenomenon [Recovered/Resolved]

NARRATIVE: CASE EVENT DATE: 20210101
